FAERS Safety Report 6568078-7 (Version None)
Quarter: 2010Q1

REPORT INFORMATION
  Report Type: 
  Country: None (occurrence: None)
  Receive Date: 20100129
  Receipt Date: 20091214
  Transmission Date: 20100710
  Serious: Yes (Death)
  Sender: FDA-Public Use
  Company Number: 2010000246

PATIENT
  Sex: Female

DRUGS (2)
  1. ACTIQ [Suspect]
     Dosage: 2400 MCG (600 MCG, 4 IN 1 D), BU
     Route: 002
  2. DURAGESIC (PARACETAMOL, ORPHENADRINE CITRATE) (75 MICROGRAM) [Suspect]
     Dosage: TRANSDERMAL
     Route: 062

REACTIONS (3)
  - DRUG PRESCRIBING ERROR [None]
  - DRUG TOXICITY [None]
  - INJURY [None]
